FAERS Safety Report 12056162 (Version 1)
Quarter: 2016Q1

REPORT INFORMATION
  Report Type: Report from Study
  Country: US (occurrence: US)
  Receive Date: 20160209
  Receipt Date: 20160209
  Transmission Date: 20160526
  Serious: No
  Sender: FDA-Public Use
  Company Number: US-ABBVIE-15P-163-1474253-00

PATIENT
  Age: 22 Year
  Sex: Female

DRUGS (3)
  1. HUMIRA [Suspect]
     Active Substance: ADALIMUMAB
     Route: 065
     Dates: start: 2015
  2. HUMIRA [Suspect]
     Active Substance: ADALIMUMAB
     Indication: COLITIS ULCERATIVE
     Dosage: SINCE OVER A YEAR
     Route: 065
     Dates: end: 2015
  3. HUMIRA [Suspect]
     Active Substance: ADALIMUMAB
     Dosage: FOR ABOUT 2 MONTHS
     Route: 065
     Dates: start: 2015, end: 2015

REACTIONS (9)
  - Headache [Unknown]
  - Lymphadenopathy [Not Recovered/Not Resolved]
  - Infectious mononucleosis [Unknown]
  - Colitis ulcerative [Recovered/Resolved]
  - Myalgia [Unknown]
  - Body temperature abnormal [Unknown]
  - Paranasal sinus discomfort [Unknown]
  - Oropharyngeal pain [Not Recovered/Not Resolved]
  - Fatigue [Not Recovered/Not Resolved]

NARRATIVE: CASE EVENT DATE: 2015
